FAERS Safety Report 9700091 (Version 1)
Quarter: 2013Q4

REPORT INFORMATION
  Report Type: Report from Study
  Country: BR (occurrence: BR)
  Receive Date: 20131121
  Receipt Date: 20131121
  Transmission Date: 20140711
  Serious: Yes (Death)
  Sender: FDA-Public Use
  Company Number: PHHY2013BR131772

PATIENT
  Sex: Female
  Weight: 67 kg

DRUGS (4)
  1. NEOTIAPIM [Suspect]
     Dosage: 1 DF, QD
     Route: 048
  2. ENALAPRIL [Concomitant]
     Indication: HYPERTENSION
     Dosage: 2 DF DAILY
     Route: 048
  3. TEGRETOL [Concomitant]
  4. RIVOTRIL [Concomitant]

REACTIONS (1)
  - Gallbladder disorder [Fatal]
